FAERS Safety Report 20685837 (Version 1)
Quarter: 2022Q2

REPORT INFORMATION
  Report Type: Spontaneous
  Country: US (occurrence: US)
  Receive Date: 20220407
  Receipt Date: 20220407
  Transmission Date: 20220721
  Serious: No
  Sender: FDA-Public Use
  Company Number: US-PFIZER INC-2020080572

PATIENT
  Age: 67 Year
  Sex: Female

DRUGS (4)
  1. LYRICA [Suspect]
     Active Substance: PREGABALIN
     Indication: Hyperkalaemia
     Dosage: 150 MG, 2X/DAY (SIG: TAKE 1 CAP (150 MG) BY MOUTH EVERY 12 HOURS (TWICE DAILY))
     Route: 048
  2. LYRICA [Suspect]
     Active Substance: PREGABALIN
     Indication: Acute kidney injury
  3. LYRICA [Suspect]
     Active Substance: PREGABALIN
     Indication: Intervertebral disc degeneration
  4. LYRICA [Suspect]
     Active Substance: PREGABALIN
     Indication: Pain

REACTIONS (1)
  - Drug ineffective [Unknown]
